FAERS Safety Report 25579424 (Version 1)
Quarter: 2025Q3

REPORT INFORMATION
  Report Type: Report from Study
  Country: CA (occurrence: CA)
  Receive Date: 20250718
  Receipt Date: 20250718
  Transmission Date: 20251021
  Serious: Yes (Hospitalization, Other)
  Sender: MERZ
  Company Number: CA-MERZ PHARMACEUTICALS LLC-ACO_178369_2025

PATIENT
  Sex: Female

DRUGS (7)
  1. DALFAMPRIDINE [Suspect]
     Active Substance: DALFAMPRIDINE
     Indication: Secondary progressive multiple sclerosis
     Dosage: 10 MILLIGRAM, Q12H
     Route: 048
     Dates: start: 20220622
  2. DALFAMPRIDINE [Suspect]
     Active Substance: DALFAMPRIDINE
     Indication: Muscle spasticity
  3. TYLENOL [Concomitant]
     Active Substance: ACETAMINOPHEN
     Indication: Product used for unknown indication
     Route: 065
  4. PREVACID [Concomitant]
     Active Substance: LANSOPRAZOLE
     Indication: Product used for unknown indication
     Route: 065
  5. VESICARE [Concomitant]
     Active Substance: SOLIFENACIN SUCCINATE
     Indication: Product used for unknown indication
     Route: 065
  6. BACLOFEN [Concomitant]
     Active Substance: BACLOFEN
     Indication: Product used for unknown indication
     Route: 065
  7. MYRBETRIQ [Concomitant]
     Active Substance: MIRABEGRON
     Indication: Product used for unknown indication
     Route: 065

REACTIONS (5)
  - Arteriovenous malformation [Recovered/Resolved]
  - Polyp [Recovered/Resolved]
  - Haemorrhage [Recovered/Resolved]
  - Iron deficiency anaemia [Recovered/Resolved]
  - Asthenia [Unknown]
